APPROVED DRUG PRODUCT: BENZONATATE
Active Ingredient: BENZONATATE
Strength: 100MG
Dosage Form/Route: CAPSULE;ORAL
Application: A081297 | Product #001 | TE Code: AA
Applicant: BIONPHARMA INC
Approved: Jan 29, 1993 | RLD: No | RS: No | Type: RX